FAERS Safety Report 9451120 (Version 1)
Quarter: 2013Q3

REPORT INFORMATION
  Report Type: Spontaneous
  Country: JP (occurrence: JP)
  Receive Date: 20130809
  Receipt Date: 20130809
  Transmission Date: 20140515
  Serious: Yes (Other)
  Sender: FDA-Public Use
  Company Number: PHHY2013JP083450

PATIENT
  Age: 62 Year
  Sex: Female

DRUGS (5)
  1. PREDNISOLONE [Suspect]
     Indication: ASTHMA
     Dosage: 30 MG/DAY
  2. AMLODIPINE BESYLATE [Concomitant]
  3. LACTOBACILLUS CASEI [Concomitant]
  4. ALBUMIN TANNATE [Concomitant]
  5. BUTROPIUM BROMIDE [Concomitant]

REACTIONS (7)
  - Pneumatosis intestinalis [Recovering/Resolving]
  - Abdominal pain upper [Recovered/Resolved]
  - Abdominal distension [Recovered/Resolved]
  - Frequent bowel movements [Recovered/Resolved]
  - Flatulence [Recovered/Resolved]
  - C-reactive protein increased [Unknown]
  - Leukocytosis [Unknown]
